FAERS Safety Report 6581069-5 (Version None)
Quarter: 2010Q1

REPORT INFORMATION
  Report Type: 
  Country: None (occurrence: None)
  Receive Date: 20100215
  Receipt Date: 20100203
  Transmission Date: 20100710
  Serious: Yes (Hospitalization)
  Sender: FDA-Public Use
  Company Number: PHHY2009GB54950

PATIENT
  Sex: Male

DRUGS (3)
  1. CLOZARIL [Suspect]
     Indication: SCHIZOPHRENIA
     Dosage: 900 MG, QD
     Dates: start: 19980901, end: 20091209
  2. VALPROATE SODIUM [Concomitant]
  3. HYOSCINE HBR HYT [Concomitant]
     Indication: SALIVARY HYPERSECRETION
     Dosage: 600 MG, UNK
     Route: 048

REACTIONS (3)
  - FALL [None]
  - GRAND MAL CONVULSION [None]
  - TIBIA FRACTURE [None]
